FAERS Safety Report 22286027 (Version 1)
Quarter: 2023Q2

REPORT INFORMATION
  Report Type: Spontaneous
  Country: TH (occurrence: TH)
  Receive Date: 20230505
  Receipt Date: 20230505
  Transmission Date: 20230721
  Serious: Yes (Life-Threatening, Hospitalization, Other)
  Sender: FDA-Public Use
  Company Number: TH-STERISCIENCE B.V.-2023-ST-001227

PATIENT
  Age: 87 Year
  Sex: Male

DRUGS (1)
  1. BUPIVACAINE [Suspect]
     Active Substance: BUPIVACAINE
     Indication: Spinal anaesthesia
     Dosage: 17 MILLIGRAM
     Route: 065

REACTIONS (2)
  - Apallic syndrome [Unknown]
  - Cardiac arrest [Unknown]
